FAERS Safety Report 25715567 (Version 2)
Quarter: 2025Q3

REPORT INFORMATION
  Report Type: Spontaneous
  Country: US (occurrence: US)
  Receive Date: 20250822
  Receipt Date: 20250925
  Transmission Date: 20251020
  Serious: Yes (Other)
  Sender: CALLIDITAS THERAPEUTICS AB
  Company Number: US-Calliditas-2025CAL01128

PATIENT
  Age: 44 Year
  Sex: Male

DRUGS (10)
  1. TARPEYO [Suspect]
     Active Substance: BUDESONIDE
     Indication: IgA nephropathy
     Route: 048
     Dates: start: 20241101, end: 202509
  2. ALLOPURINOL [Concomitant]
     Active Substance: ALLOPURINOL
  3. CHLORTHALIDONE [Concomitant]
     Active Substance: CHLORTHALIDONE
  4. DILTIAZEM [Concomitant]
     Active Substance: DILTIAZEM
  5. VITAMIN D2 [Concomitant]
     Active Substance: ERGOCALCIFEROL
  6. FISH OIL [Concomitant]
     Active Substance: FISH OIL
  7. HYDRALAZINE [Concomitant]
     Active Substance: HYDRALAZINE HYDROCHLORIDE
  8. LOPRESSOR [Concomitant]
     Active Substance: METOPROLOL TARTRATE
  9. ZOFRAN [Concomitant]
     Active Substance: ONDANSETRON HYDROCHLORIDE
  10. TYLENOL [Concomitant]
     Active Substance: ACETAMINOPHEN

REACTIONS (14)
  - Weight increased [Not Recovered/Not Resolved]
  - Constipation [Not Recovered/Not Resolved]
  - Abdominal distension [Not Recovered/Not Resolved]
  - Solar lentigo [Not Recovered/Not Resolved]
  - Increased tendency to bruise [Not Recovered/Not Resolved]
  - Drug ineffective [Unknown]
  - Peripheral swelling [Not Recovered/Not Resolved]
  - Muscle spasms [Unknown]
  - Skin striae [Unknown]
  - Dyspnoea [Unknown]
  - Thrombosis [Unknown]
  - Nausea [Not Recovered/Not Resolved]
  - Pyrexia [Not Recovered/Not Resolved]
  - Inappropriate schedule of product discontinuation [Unknown]

NARRATIVE: CASE EVENT DATE: 20250301
